FAERS Safety Report 10511320 (Version 2)
Quarter: 2014Q4

REPORT INFORMATION
  Report Type: Spontaneous
  Country: US (occurrence: US)
  Receive Date: 20141010
  Receipt Date: 20141231
  Transmission Date: 20150528
  Serious: Yes (Hospitalization, Other)
  Sender: FDA-Public Use
  Company Number: US-BAYER-2014-147354

PATIENT
  Age: 19 Year
  Sex: Female
  Weight: 63.49 kg

DRUGS (5)
  1. MIRENA [Suspect]
     Active Substance: LEVONORGESTREL
     Indication: CONTRACEPTION
     Dosage: 20 MCG/24HR, CONT
     Route: 015
     Dates: start: 20121008
  2. DEPO-PROVERA [Concomitant]
     Active Substance: MEDROXYPROGESTERONE ACETATE
  3. PROMETRIUM [Concomitant]
     Active Substance: PROGESTERONE
  4. MIRENA [Suspect]
     Active Substance: LEVONORGESTREL
     Indication: CONTRACEPTION
     Dosage: 20 MCG/24HR, CONT
     Route: 015
     Dates: start: 20130203, end: 20140626
  5. ESTRADIOL. [Concomitant]
     Active Substance: ESTRADIOL
     Dosage: UNK
     Dates: start: 20140527

REACTIONS (17)
  - Genital haemorrhage [None]
  - Hormone level abnormal [None]
  - Device dislocation [None]
  - Anxiety [None]
  - Genital injury [None]
  - Medical device pain [None]
  - Impaired work ability [None]
  - Device use error [None]
  - General physical condition abnormal [None]
  - Emotional distress [None]
  - Device issue [None]
  - Injury [None]
  - Pain [None]
  - Adverse event [None]
  - Device issue [None]
  - Sexual dysfunction [None]
  - Anger [None]

NARRATIVE: CASE EVENT DATE: 2012
